FAERS Safety Report 8902115 (Version 1)
Quarter: 2012Q4

REPORT INFORMATION
  Report Type: 
  Country: EC (occurrence: EC)
  Receive Date: 20121112
  Receipt Date: 20121112
  Transmission Date: 20130627
  Serious: Yes (Death)
  Sender: FDA-Public Use
  Company Number: PHHY2012EC103517

PATIENT
  Sex: Female

DRUGS (1)
  1. DIOVAN [Suspect]
     Indication: HYPERTENSION
     Dosage: 80 mg, UNK
     Route: 048
     Dates: start: 20110531, end: 20120530

REACTIONS (2)
  - Infarction [Fatal]
  - Dyspepsia [Unknown]
